FAERS Safety Report 9268163 (Version 1)
Quarter: 2013Q2

REPORT INFORMATION
  Report Type: Spontaneous
  Country: US (occurrence: US)
  Receive Date: 20130502
  Receipt Date: 20130502
  Transmission Date: 20140414
  Serious: No
  Sender: FDA-Public Use
  Company Number: US-ALEXION-A201201703

PATIENT
  Age: 81 Year
  Sex: Female

DRUGS (5)
  1. SOLIRIS 300MG [Suspect]
     Indication: PAROXYSMAL NOCTURNAL HAEMOGLOBINURIA
     Dosage: UNK
     Route: 042
     Dates: start: 20120604
  2. COUMADIN [Concomitant]
  3. FOLIC ACID [Concomitant]
  4. LORAZEPAM [Concomitant]
  5. MULTIVITAMIN AND MINERAL [Concomitant]

REACTIONS (2)
  - Gingival bleeding [Unknown]
  - Tooth disorder [Unknown]
